FAERS Safety Report 9242738 (Version 5)
Quarter: 2014Q2

REPORT INFORMATION
  Report Type: Report from Study
  Country: JP (occurrence: JP)
  Receive Date: 20130419
  Receipt Date: 20140430
  Transmission Date: 20141212
  Serious: Yes (Other)
  Sender: FDA-Public Use
  Company Number: JP-JNJFOC-20130407717

PATIENT
  Age: 36 Year
  Sex: Female
  Weight: 42 kg

DRUGS (10)
  1. SIMPONI [Suspect]
     Indication: RHEUMATOID ARTHRITIS
     Route: 058
     Dates: start: 20120522, end: 20130522
  2. SIMPONI [Suspect]
     Indication: RHEUMATOID ARTHRITIS
     Route: 058
     Dates: start: 20120424, end: 20130424
  3. SIMPONI [Suspect]
     Indication: RHEUMATOID ARTHRITIS
     Route: 058
     Dates: start: 20120327, end: 20130327
  4. SIMPONI [Suspect]
     Indication: RHEUMATOID ARTHRITIS
     Route: 058
     Dates: start: 20120228, end: 20130228
  5. METHOTREXATE [Suspect]
     Indication: RHEUMATOID ARTHRITIS
     Route: 065
     Dates: start: 20081209, end: 20120710
  6. RINDERON [Suspect]
     Indication: RHEUMATOID ARTHRITIS
     Route: 048
  7. AZATHIOPRINE [Suspect]
     Indication: RHEUMATOID ARTHRITIS
     Route: 065
  8. ONEALFA [Concomitant]
     Indication: PROPHYLAXIS
     Route: 048
  9. MUCOSTA [Concomitant]
     Indication: PROPHYLAXIS
     Route: 048
  10. SALAGEN [Concomitant]
     Indication: SJOGREN^S SYNDROME
     Route: 048

REACTIONS (1)
  - Cellulitis [Recovered/Resolved]
